FAERS Safety Report 12204502 (Version 1)
Quarter: 2016Q1

REPORT INFORMATION
  Report Type: Spontaneous
  Country: DE (occurrence: DE)
  Receive Date: 20160323
  Receipt Date: 20160323
  Transmission Date: 20160526
  Serious: Yes (Life-Threatening, Hospitalization)
  Sender: FDA-Public Use
  Company Number: DE-SA-2016SA058328

PATIENT
  Age: 30 Year
  Sex: Female
  Weight: 57 kg

DRUGS (2)
  1. TAXOTERE [Suspect]
     Active Substance: DOCETAXEL
     Indication: BREAST CANCER
     Route: 042
     Dates: start: 20160128, end: 20160128
  2. TAXOTERE [Suspect]
     Active Substance: DOCETAXEL
     Indication: BREAST CANCER
     Route: 042
     Dates: start: 20160107, end: 20160107

REACTIONS (5)
  - Presyncope [Unknown]
  - Visual impairment [Unknown]
  - Throat tightness [Unknown]
  - Hypersensitivity [Unknown]
  - Dysgeusia [Unknown]

NARRATIVE: CASE EVENT DATE: 20160107
